FAERS Safety Report 10163225 (Version 1)
Quarter: 2014Q2

REPORT INFORMATION
  Report Type: Spontaneous
  Country: IT (occurrence: IT)
  Receive Date: 20140509
  Receipt Date: 20140509
  Transmission Date: 20141212
  Serious: Yes (Life-Threatening)
  Sender: FDA-Public Use
  Company Number: IT-B.I. PHARMACEUTICALS,INC./RIDGEFIELD-2014-BI-20512IT

PATIENT
  Age: 72 Year
  Sex: Male

DRUGS (7)
  1. PRADAXA [Suspect]
     Indication: ATRIAL FIBRILLATION
     Route: 048
     Dates: start: 20131011, end: 20140419
  2. PRADAXA [Suspect]
     Indication: CEREBROVASCULAR ACCIDENT PROPHYLAXIS
  3. SOTALEX [Concomitant]
     Route: 065
  4. NORVASC [Concomitant]
     Route: 065
  5. GLIBOMET [Concomitant]
     Route: 065
  6. PROSCAR [Concomitant]
     Route: 065
  7. LANOXIN [Concomitant]
     Route: 065

REACTIONS (2)
  - Peritoneal haemorrhage [Recovered/Resolved with Sequelae]
  - Splenic rupture [Recovered/Resolved with Sequelae]
